FAERS Safety Report 4946195-2 (Version None)
Quarter: 2006Q1

REPORT INFORMATION
  Report Type: 
  Country: None (occurrence: None)
  Receive Date: 20060118
  Receipt Date: 20050503
  Transmission Date: 20060701
  Serious: Yes (Life-Threatening, Hospitalization, Other)
  Sender: FDA-Public Use
  Company Number: US-JNJFOC-20050403294

PATIENT
  Age: 56 Year
  Sex: Male

DRUGS (2)
  1. DOXIL [Suspect]
     Indication: METASTATIC RENAL CELL CARCINOMA
     Dosage: 70 MG, 1 IN 4 WEEK, INTRAVENOUS
     Route: 042
     Dates: start: 20050216, end: 20050330
  2. TOPOTECAN (TOPOTECAN)INJECTION [Suspect]
     Indication: METASTATIC RENAL CELL CARCINOMA
     Dosage: 2.6 MG, 1 IN 3 WEEK, INTRAVENOUS
     Route: 042
     Dates: start: 20050216, end: 20050330

REACTIONS (1)
  - SEPSIS [None]
